FAERS Safety Report 23903111 (Version 1)
Quarter: 2024Q2

REPORT INFORMATION
  Report Type: Spontaneous
  Country: US (occurrence: US)
  Receive Date: 20240527
  Receipt Date: 20240527
  Transmission Date: 20240716
  Serious: No
  Sender: FDA-Public Use
  Company Number: US-ABBVIE-5775358

PATIENT
  Sex: Female

DRUGS (1)
  1. KYBELLA [Suspect]
     Active Substance: DEOXYCHOLIC ACID
     Indication: Fat tissue increased
     Dosage: TIME INTERVAL: AS NECESSARY: FORM STRENGTH: 10MG/ML
     Route: 058
     Dates: start: 20240419, end: 20240419

REACTIONS (3)
  - Inflammation [Not Recovered/Not Resolved]
  - Nodule [Not Recovered/Not Resolved]
  - Induration [Not Recovered/Not Resolved]

NARRATIVE: CASE EVENT DATE: 20240501
